FAERS Safety Report 12431909 (Version 1)
Quarter: 2016Q2

REPORT INFORMATION
  Report Type: Report from Study
  Country: CA (occurrence: CA)
  Receive Date: 20160603
  Receipt Date: 20160603
  Transmission Date: 20160815
  Serious: Yes (Other)
  Sender: FDA-Public Use
  Company Number: PHHY2013CA082940

PATIENT
  Sex: Female

DRUGS (10)
  1. CALCIUM [Concomitant]
     Active Substance: CALCIUM
     Indication: PRODUCT USED FOR UNKNOWN INDICATION
     Route: 065
  2. OMEGA 3 [Concomitant]
     Active Substance: OMEGA-3 FATTY ACIDS
     Indication: PRODUCT USED FOR UNKNOWN INDICATION
     Route: 065
  3. GLEEVEC [Suspect]
     Active Substance: IMATINIB MESYLATE
     Dosage: 300 MG, QD
     Route: 048
  4. BIO TEARS [Concomitant]
     Active Substance: POLYVINYL ALCOHOL
     Indication: PRODUCT USED FOR UNKNOWN INDICATION
     Dosage: UNK
     Route: 065
  5. GLEEVEC [Suspect]
     Active Substance: IMATINIB MESYLATE
     Dosage: 300 MG, QD
     Route: 048
     Dates: start: 20140513
  6. GLEEVEC [Suspect]
     Active Substance: IMATINIB MESYLATE
     Dosage: 400 MG, QD
     Route: 048
     Dates: start: 201110
  7. NATURAL TEARS [Concomitant]
     Active Substance: POLYVINYL ALCOHOL\POVIDONE
     Indication: PRODUCT USED FOR UNKNOWN INDICATION
     Dosage: UNK, QHS
     Route: 065
  8. GLUCOSAMINE [Concomitant]
     Active Substance: GLUCOSAMINE
     Indication: PRODUCT USED FOR UNKNOWN INDICATION
     Route: 065
  9. GLEEVEC [Suspect]
     Active Substance: IMATINIB MESYLATE
     Dosage: 200 MG, QD
     Route: 048
  10. GLEEVEC [Suspect]
     Active Substance: IMATINIB MESYLATE
     Indication: GASTROINTESTINAL STROMAL TUMOUR
     Dosage: 300 MG, QD
     Route: 048
     Dates: start: 2007

REACTIONS (41)
  - Joint swelling [Unknown]
  - Rash [Unknown]
  - Dizziness [Not Recovered/Not Resolved]
  - Pain [Unknown]
  - Solar lentigo [Unknown]
  - Dyspepsia [Unknown]
  - Dry eye [Unknown]
  - Contusion [Unknown]
  - Retinal oedema [Unknown]
  - Eye irritation [Unknown]
  - Hypotension [Unknown]
  - Nasopharyngitis [Unknown]
  - Malaise [Unknown]
  - Decreased appetite [Unknown]
  - Nausea [Unknown]
  - Pain in extremity [Unknown]
  - Cystoid macular oedema [Unknown]
  - Lethargy [Unknown]
  - Eye swelling [Recovering/Resolving]
  - Asthenia [Unknown]
  - Fatigue [Unknown]
  - Eye pain [Unknown]
  - Haemorrhagic diathesis [Unknown]
  - Haemoglobin decreased [Unknown]
  - Eating disorder [Unknown]
  - Weight decreased [Unknown]
  - Myalgia [Unknown]
  - Dyspnoea [Unknown]
  - Palpitations [Unknown]
  - Constipation [Unknown]
  - Hepatic lesion [Recovering/Resolving]
  - Blood iron decreased [Unknown]
  - Cardiac valve disease [Unknown]
  - Blood blister [Not Recovered/Not Resolved]
  - Visual impairment [Unknown]
  - Abdominal discomfort [Unknown]
  - Red blood cell count decreased [Unknown]
  - Cataract [Unknown]
  - Plasma cells increased [Unknown]
  - Discomfort [Unknown]
  - Flushing [Unknown]

NARRATIVE: CASE EVENT DATE: 2011
